FAERS Safety Report 6655794-1 (Version None)
Quarter: 2010Q1

REPORT INFORMATION
  Report Type: 
  Country: None (occurrence: None)
  Receive Date: 20100329
  Receipt Date: 20100318
  Transmission Date: 20100710
  Serious: Yes (Hospitalization)
  Sender: FDA-Public Use
  Company Number: CA-JNJFOC-20100305996

PATIENT
  Sex: Male
  Weight: 76 kg

DRUGS (7)
  1. REMICADE [Suspect]
     Indication: CROHN'S DISEASE
     Dosage: 6TH DOSE
     Route: 042
  2. REMICADE [Suspect]
     Route: 042
  3. IMURAN [Concomitant]
  4. CRESTOR [Concomitant]
  5. METFORMIN [Concomitant]
  6. LONG ACTING INSULIN [Concomitant]
  7. DIOVAN [Concomitant]

REACTIONS (4)
  - COUGH [None]
  - DYSPNOEA [None]
  - OROPHARYNGEAL PAIN [None]
  - PAIN IN EXTREMITY [None]
